FAERS Safety Report 9475592 (Version 1)
Quarter: 2013Q3

REPORT INFORMATION
  Report Type: Spontaneous
  Country: US (occurrence: US)
  Receive Date: 20130826
  Receipt Date: 20130826
  Transmission Date: 20140515
  Serious: No
  Sender: FDA-Public Use
  Company Number: US-BAYER-2013-100884

PATIENT
  Sex: Female

DRUGS (1)
  1. MIRENA [Suspect]
     Dosage: 20 MG, CONT
     Route: 015

REACTIONS (2)
  - Medical device discomfort [Recovered/Resolved]
  - Dyspareunia [Recovered/Resolved]
